FAERS Safety Report 21012479 (Version 4)
Quarter: 2022Q3

REPORT INFORMATION
  Report Type: Spontaneous
  Country: US (occurrence: US)
  Receive Date: 20220627
  Receipt Date: 20220826
  Transmission Date: 20221026
  Serious: No
  Sender: FDA-Public Use
  Company Number: US-NOVARTISTESTPH-NVSC2022US146006

PATIENT
  Sex: Male

DRUGS (7)
  1. MEKINIST [Suspect]
     Active Substance: TRAMETINIB DIMETHYL SULFOXIDE
     Indication: Lung neoplasm malignant
     Dosage: 2 MG, QD
     Route: 048
     Dates: start: 20211109
  2. MEKINIST [Suspect]
     Active Substance: TRAMETINIB DIMETHYL SULFOXIDE
     Dosage: 2 MG, QD (BY MOUTH)
     Route: 048
     Dates: start: 20220112
  3. MEKINIST [Suspect]
     Active Substance: TRAMETINIB DIMETHYL SULFOXIDE
     Dosage: 2 MG, QD (BY MOUTH)
     Route: 048
     Dates: start: 202202
  4. TAFINLAR [Suspect]
     Active Substance: DABRAFENIB MESYLATE
     Indication: Lung neoplasm malignant
     Dosage: 100 MG, Q12H
     Route: 048
     Dates: start: 20220106
  5. TAFINLAR [Suspect]
     Active Substance: DABRAFENIB MESYLATE
     Dosage: 100 MG, Q12H (BY MOUTH)
     Route: 048
     Dates: start: 20220112
  6. TAFINLAR [Suspect]
     Active Substance: DABRAFENIB MESYLATE
     Dosage: 100 MG, Q12H (BY MOUTH)
     Route: 048
     Dates: start: 202202
  7. NORVASC [Suspect]
     Active Substance: AMLODIPINE BESYLATE
     Indication: Lung neoplasm malignant
     Dosage: UNK
     Route: 065

REACTIONS (8)
  - Dry eye [Unknown]
  - Abdominal discomfort [Unknown]
  - Anxiety [Unknown]
  - Balance disorder [Unknown]
  - Flushing [Unknown]
  - Asthenopia [Unknown]
  - Blood pressure abnormal [Unknown]
  - Vision blurred [Unknown]
